FAERS Safety Report 12334306 (Version 1)
Quarter: 2016Q2

REPORT INFORMATION
  Report Type: Report from Study
  Country: US (occurrence: US)
  Receive Date: 20160504
  Receipt Date: 20160504
  Transmission Date: 20160815
  Serious: No
  Sender: FDA-Public Use
  Company Number: US-ABBVIE-15P-163-1427593-00

PATIENT
  Age: 4 Month
  Sex: Male

DRUGS (1)
  1. CREON [Suspect]
     Active Substance: PANCRELIPASE AMYLASE\PANCRELIPASE LIPASE\PANCRELIPASE PROTEASE
     Indication: CYSTIC FIBROSIS
     Dosage: MULITPLE PILLS WITH EVERY MEAL
     Route: 048
     Dates: start: 2007, end: 2011

REACTIONS (1)
  - Dermatitis diaper [Recovered/Resolved]

NARRATIVE: CASE EVENT DATE: 20070101
